FAERS Safety Report 10343897 (Version 2)
Quarter: 2014Q4

REPORT INFORMATION
  Report Type: Spontaneous
  Country: US (occurrence: US)
  Receive Date: 20140727
  Receipt Date: 20141107
  Transmission Date: 20150528
  Serious: No
  Sender: FDA-Public Use
  Company Number: US-009507513-1407USA008797

PATIENT
  Sex: Male
  Weight: 79.37 kg

DRUGS (3)
  1. KAVA [Concomitant]
     Active Substance: PIPER METHYSTICUM ROOT
     Indication: ANXIETY
     Dosage: UNK, UNKNOWN
  2. LOTRIMIN ULTRA [Suspect]
     Active Substance: BUTENAFINE HYDROCHLORIDE
     Indication: TINEA CRURIS
     Dosage: UNK UNK, BID
     Route: 061
  3. LOTRIMIN ULTRA [Suspect]
     Active Substance: BUTENAFINE HYDROCHLORIDE
     Indication: FUNGAL INFECTION

REACTIONS (1)
  - Drug ineffective [Unknown]
